FAERS Safety Report 6062727-8 (Version None)
Quarter: 2009Q1

REPORT INFORMATION
  Report Type: 
  Country: None (occurrence: None)
  Receive Date: 20090202
  Receipt Date: 20090202
  Transmission Date: 20090719
  Serious: No
  Sender: FDA-Public Use
  Company Number: None

PATIENT
  Age: 46 Year
  Sex: Female
  Weight: 95.2554 kg

DRUGS (2)
  1. CYMBALTA [Suspect]
     Indication: BACK PAIN
     Dates: start: 20080609, end: 20081229
  2. CYMBALTA [Suspect]
     Indication: NECK PAIN
     Dates: start: 20080609, end: 20081229

REACTIONS (6)
  - CHAPPED LIPS [None]
  - ELECTRIC SHOCK [None]
  - HEADACHE [None]
  - IRRITABILITY [None]
  - SLEEP DISORDER [None]
  - TONGUE DRY [None]
